FAERS Safety Report 11274920 (Version 2)
Quarter: 2015Q3

REPORT INFORMATION
  Report Type: Report from Study
  Country: CN (occurrence: CN)
  Receive Date: 20150716
  Receipt Date: 20150803
  Transmission Date: 20151125
  Serious: Yes (Other)
  Sender: FDA-Public Use
  Company Number: CN-ROCHE-1606086

PATIENT

DRUGS (3)
  1. LIPOSOMAL PACLITAXEL [Suspect]
     Active Substance: PACLITAXEL
     Indication: GASTRIC CANCER
     Dosage: 30 MG/VIAL
     Route: 065
  2. BEVACIZUMAB [Suspect]
     Active Substance: BEVACIZUMAB
     Indication: GASTRIC CANCER
     Dosage: AS 1 COURSE OF TREATMENT.?10MG/VIAL
     Route: 042
  3. CAPECITABINE. [Suspect]
     Active Substance: CAPECITABINE
     Indication: GASTRIC CANCER
     Dosage: 500MG X 12/BOX
     Route: 065

REACTIONS (2)
  - Bone marrow failure [Unknown]
  - Hepatic function abnormal [Unknown]
